FAERS Safety Report 7146010-5 (Version None)
Quarter: 2010Q4

REPORT INFORMATION
  Report Type: 
  Country: None (occurrence: None)
  Receive Date: 20101123
  Receipt Date: 20101110
  Transmission Date: 20110411
  Serious: Yes (Death, Other)
  Sender: FDA-Public Use
  Company Number: TPA2010A05781

PATIENT
  Age: 61 Year
  Sex: Female

DRUGS (3)
  1. ACTOS [Suspect]
     Indication: DIABETES MELLITUS
     Dosage: 15 MG, 1 IN 1 D, PER ORAL ; 45 MG, 1 IN 1 D, PER ORAL
     Route: 048
     Dates: start: 20051001, end: 20071001
  2. ACTOS [Suspect]
     Indication: DIABETES MELLITUS
     Dosage: 15 MG, 1 IN 1 D, PER ORAL ; 45 MG, 1 IN 1 D, PER ORAL
     Route: 048
     Dates: start: 20100601, end: 20101103
  3. UNSPECIFIED IMMUNOSUPPRESSION (IMMUNOSUPPRESSIVE AGENTS) [Concomitant]

REACTIONS (2)
  - RENAL FAILURE ACUTE [None]
  - SUDDEN DEATH [None]
